FAERS Safety Report 5086854-7 (Version None)
Quarter: 2006Q3

REPORT INFORMATION
  Report Type: 
  Country: None (occurrence: None)
  Receive Date: 20060818
  Receipt Date: 20060807
  Transmission Date: 20061208
  Serious: Yes (Other)
  Sender: FDA-Public Use
  Company Number: USA-2006-0024852

PATIENT
  Age: 21 Year
  Sex: Female

DRUGS (4)
  1. OXYCONTIN [Suspect]
     Indication: DRUG ABUSER
  2. HEROIN (DIAMORPHINE) [Concomitant]
     Indication: DRUG ABUSER
  3. DILAUDID [Suspect]
     Indication: DRUG ABUSER
  4. COCAINE (COCAINE) [Suspect]
     Indication: DRUG ABUSER

REACTIONS (2)
  - DRUG EXPOSURE DURING PREGNANCY [None]
  - POLYSUBSTANCE DEPENDENCE [None]
